FAERS Safety Report 19429118 (Version 2)
Quarter: 2021Q3

REPORT INFORMATION
  Report Type: Report from Study
  Country: DE (occurrence: DE)
  Receive Date: 20210617
  Receipt Date: 20210930
  Transmission Date: 20211014
  Serious: Yes (Death, Hospitalization, Other)
  Sender: FDA-Public Use
  Company Number: DE-ACCORD-228132

PATIENT
  Sex: Female
  Weight: 72 kg

DRUGS (2)
  1. KISQALI [Suspect]
     Active Substance: RIBOCICLIB
     Indication: BREAST CANCER METASTATIC
     Dosage: 600 MG, QD (21 DAYS INTAKE, 7 DAYS PAUSE)
     Route: 048
     Dates: start: 20210119, end: 20210205
  2. FULVESTRANT. [Suspect]
     Active Substance: FULVESTRANT
     Indication: BREAST CANCER METASTATIC
     Dosage: 250 MG, Q3W (DAILY DOSE, EVERY 3 WEEKS)
     Route: 030
     Dates: start: 20210124, end: 20210205

REACTIONS (12)
  - General physical health deterioration [Recovered/Resolved]
  - Oesophagitis [Fatal]
  - Odynophagia [Fatal]
  - Inflammation [Fatal]
  - Diarrhoea [Recovered/Resolved]
  - Dysphagia [Fatal]
  - Bone marrow disorder [Unknown]
  - Leukopenia [Fatal]
  - Infection [Fatal]
  - Sepsis [Fatal]
  - Polyneuropathy [Not Recovered/Not Resolved]
  - Pyrexia [Fatal]

NARRATIVE: CASE EVENT DATE: 20210120
